FAERS Safety Report 4879498-0 (Version None)
Quarter: 2006Q1

REPORT INFORMATION
  Report Type: 
  Country: None (occurrence: None)
  Receive Date: 20060110
  Receipt Date: 20041223
  Transmission Date: 20060701
  Serious: Yes (Other)
  Sender: FDA-Public Use
  Company Number: GBWYE274110DEC04

PATIENT
  Age: 25 Year
  Sex: Female

DRUGS (7)
  1. MYAMBUTOL [Suspect]
     Indication: TUBERCULOSIS
     Dosage: 900MG, QD, 047
     Dates: start: 20041206
  2. RIFATER [Suspect]
     Indication: TUBERCULOSIS
     Dosage: 5 TABS, QD, 047
     Dates: start: 20041206
  3. PYRIDOXINE HCL [Suspect]
     Indication: TUBERCULOSIS
     Dosage: 50 MG/DAY/047
     Dates: start: 20041206, end: 20041206
  4. VANCOMYCIN [Concomitant]
  5. AUGMENTIN '125' [Concomitant]
  6. CLARITHROMYCIN [Concomitant]
  7. ACETAMINOPHEN [Concomitant]

REACTIONS (3)
  - ABDOMINAL PAIN [None]
  - RASH GENERALISED [None]
  - VISUAL DISTURBANCE [None]
